FAERS Safety Report 7350707-1 (Version None)
Quarter: 2011Q1

REPORT INFORMATION
  Report Type: 
  Country: None (occurrence: None)
  Receive Date: 20110303
  Receipt Date: 20110224
  Transmission Date: 20110831
  Serious: Yes (Hospitalization, Disabling, Other)
  Sender: FDA-Public Use
  Company Number: CL-294-2011

PATIENT
  Age: 67 Year
  Sex: Male

DRUGS (2)
  1. METRONIDAZOLE [Suspect]
     Indication: ABSCESS
  2. CEPHALOSPORIN UNK [Suspect]
     Indication: ABSCESS

REACTIONS (6)
  - DYSARTHRIA [None]
  - ATAXIA [None]
  - DRUG INTERACTION [None]
  - BURNING SENSATION [None]
  - NEUROPATHY PERIPHERAL [None]
  - NEUROTOXICITY [None]
